FAERS Safety Report 9805963 (Version 2)
Quarter: 2014Q1

REPORT INFORMATION
  Report Type: Report from Study
  Country: FR (occurrence: FR)
  Receive Date: 20140109
  Receipt Date: 20140115
  Transmission Date: 20141002
  Serious: Yes (Hospitalization)
  Sender: FDA-Public Use
  Company Number: FR-MERCK-1401FRA000250

PATIENT
  Age: 64 Year
  Sex: Female

DRUGS (4)
  1. BOCEPREVIR [Suspect]
     Indication: HEPATITIS C
     Dosage: 2400 MG, QD
     Route: 048
     Dates: start: 20130328, end: 20130522
  2. VIRAFERONPEG [Suspect]
     Indication: HEPATITIS C
     Dosage: 100 MICROGRAM PER KILOGRAM, UNK
     Dates: start: 20130302, end: 20130522
  3. VIRAFERONPEG [Suspect]
     Dosage: 65 MICROGRAM PER KILOGRAM, UNK
     Dates: start: 20130504
  4. COPEGUS [Suspect]
     Indication: HEPATITIS C
     Dosage: 1000 MG, QD
     Route: 048
     Dates: start: 20130502, end: 20130522

REACTIONS (1)
  - Large intestine perforation [Recovering/Resolving]
